FAERS Safety Report 13865599 (Version 1)
Quarter: 2017Q3

REPORT INFORMATION
  Report Type: Spontaneous
  Country: US (occurrence: US)
  Receive Date: 20170814
  Receipt Date: 20170814
  Transmission Date: 20171127
  Serious: No
  Sender: FDA-Public Use
  Company Number: US-LEXICON PHARMACEUTICALS, INC-17-1606-00584

PATIENT
  Age: 84 Year
  Sex: Male
  Weight: 68.1 kg

DRUGS (5)
  1. TELOTRISTAT ETHYL [Suspect]
     Active Substance: TELOTRISTAT ETHYL
     Indication: CARCINOID SYNDROME
     Route: 048
     Dates: start: 201707
  2. OXYCODONE [Suspect]
     Active Substance: OXYCODONE
     Indication: PLEURISY
  3. OXYCODONE [Suspect]
     Active Substance: OXYCODONE
     Indication: CHEST PAIN
     Route: 048
     Dates: start: 20170715, end: 20170716
  4. EYE INJECTIONS [Concomitant]
     Indication: MACULAR DEGENERATION
  5. SOMATOSTATIN [Concomitant]
     Active Substance: SOMATOSTATIN
     Indication: CARCINOID SYNDROME

REACTIONS (4)
  - Pleurisy [Not Recovered/Not Resolved]
  - Aphasia [Recovered/Resolved]
  - Chest pain [Not Recovered/Not Resolved]
  - Abnormal behaviour [Recovered/Resolved]

NARRATIVE: CASE EVENT DATE: 20170715
